FAERS Safety Report 17307291 (Version 1)
Quarter: 2020Q1

REPORT INFORMATION
  Report Type: Spontaneous
  Country: GB (occurrence: GB)
  Receive Date: 20200123
  Receipt Date: 20200123
  Transmission Date: 20200409
  Serious: Yes (Hospitalization)
  Sender: FDA-Public Use
  Company Number: GB-MYLANLABS-2020M1006653

PATIENT
  Age: 72 Year
  Sex: Male

DRUGS (11)
  1. ATENOLOL. [Concomitant]
     Active Substance: ATENOLOL
     Dosage: 50 MILLIGRAM, QD
     Route: 048
  2. CLOPIDOGREL [Concomitant]
     Active Substance: CLOPIDOGREL BISULFATE
     Dosage: 75 MILLIGRAM, QD
     Route: 048
  3. FERROUS FUMARATE [Concomitant]
     Active Substance: FERROUS FUMARATE
     Dosage: 630 MILLIGRAM, QD
  4. MACROGOL [Concomitant]
     Active Substance: POLYETHYLENE GLYCOLS
     Dosage: UP TO FOUR TIMES DAILY
     Route: 048
  5. LANSOPRAZOLE. [Concomitant]
     Active Substance: LANSOPRAZOLE
     Dosage: 30 MILLIGRAM, QD
     Route: 048
  6. CAPECITABINE. [Suspect]
     Active Substance: CAPECITABINE
     Indication: RECTAL ADENOCARCINOMA
     Dosage: 14 DAYS THEN 7-DAY BREAK.
     Route: 048
     Dates: start: 20190930, end: 20191016
  7. LOSARTAN. [Concomitant]
     Active Substance: LOSARTAN
     Dosage: 100 MILLIGRAM, QD
     Route: 048
  8. PRAVASTATIN. [Concomitant]
     Active Substance: PRAVASTATIN
     Dosage: EVERY NIGHT
     Route: 048
  9. LOPERAMIDE [Concomitant]
     Active Substance: LOPERAMIDE
     Dosage: STAT THEN 2MG AS NECESSARY
     Route: 048
  10. LOPERAMIDE [Concomitant]
     Active Substance: LOPERAMIDE
     Dosage: STAT THEN 2MG AS NECESSARY
     Route: 048
  11. METOCLOPRAMIDE. [Concomitant]
     Active Substance: METOCLOPRAMIDE
     Dosage: THREE TIMES A DAY

REACTIONS (4)
  - Erythema [Unknown]
  - Feeling hot [Unknown]
  - Product use issue [Unknown]
  - Palmar-plantar erythrodysaesthesia syndrome [Recovering/Resolving]

NARRATIVE: CASE EVENT DATE: 20191011
